FAERS Safety Report 19046301 (Version 1)
Quarter: 2021Q1

REPORT INFORMATION
  Report Type: Spontaneous
  Country: KR (occurrence: KR)
  Receive Date: 20210323
  Receipt Date: 20210323
  Transmission Date: 20210420
  Serious: Yes (Life-Threatening)
  Sender: FDA-Public Use
  Company Number: KR-ELI_LILLY_AND_COMPANY-KR202103009680

PATIENT
  Age: 74 Year
  Sex: Male

DRUGS (1)
  1. TRULICITY [Suspect]
     Active Substance: DULAGLUTIDE
     Indication: DIABETES MELLITUS
     Dosage: 0.75 MG, UNKNOWN
     Route: 065

REACTIONS (7)
  - Feeding disorder [Recovering/Resolving]
  - Nausea [Unknown]
  - Retching [Recovering/Resolving]
  - Frequent bowel movements [Recovering/Resolving]
  - Expired product administered [Recovered/Resolved]
  - Hyperhidrosis [Unknown]
  - Abdominal discomfort [Unknown]

NARRATIVE: CASE EVENT DATE: 20210313
